FAERS Safety Report 7707661-X (Version None)
Quarter: 2011Q3

REPORT INFORMATION
  Report Type: 
  Country: None (occurrence: None)
  Receive Date: 20110824
  Receipt Date: 20110819
  Transmission Date: 20111222
  Serious: Yes (Hospitalization, Other)
  Sender: FDA-Public Use
  Company Number: US-ABBOTT-10P-163-0627978-00

PATIENT
  Sex: Female
  Weight: 124.85 kg

DRUGS (25)
  1. HUMIRA [Suspect]
     Dates: start: 20100101
  2. NEXIUM [Concomitant]
     Indication: IMPAIRED GASTRIC EMPTYING
  3. REGLAN [Concomitant]
     Indication: IMPAIRED GASTRIC EMPTYING
  4. LANTUS [Concomitant]
     Indication: DIABETES MELLITUS
  5. CORGARD [Concomitant]
     Indication: FAMILIAL TREMOR
     Dates: start: 20010101
  6. PLAVIX [Concomitant]
     Indication: ANTIPHOSPHOLIPID ANTIBODIES
     Dosage: AT BEDTIME
     Dates: start: 20010101
  7. QUINACRANE COMPUND PRODUCT [Concomitant]
     Indication: RETINITIS PIGMENTOSA
     Dates: start: 20030101
  8. OXYCONTIN [Concomitant]
     Indication: PAIN
     Dates: start: 20060101
  9. PERCOCET [Concomitant]
     Indication: PAIN
     Dates: start: 20060101
  10. DIFLUCAN [Concomitant]
     Indication: CANDIDIASIS
     Dates: start: 20060101
  11. CYTOMEL [Concomitant]
     Indication: HYPOTHYROIDISM
     Dates: start: 20060701
  12. CYMBALTA [Concomitant]
     Indication: DEPRESSION
  13. LYRICA [Concomitant]
     Indication: NEUROPATHY PERIPHERAL
  14. CRESTOR [Concomitant]
     Indication: PRODUCT USED FOR UNKNOWN INDICATION
  15. LASIX [Concomitant]
     Indication: JOINT SWELLING
     Dates: start: 20010101
  16. HUMIRA [Suspect]
     Indication: PSORIATIC ARTHROPATHY
     Dates: start: 20070101, end: 20090101
  17. KLONOPIN [Concomitant]
     Indication: ANXIETY
     Dosage: IN THE EVENING
  18. FLEXERIL [Concomitant]
     Indication: TEMPOROMANDIBULAR JOINT SYNDROME
     Dates: start: 19910101
  19. PREDNISONE [Concomitant]
     Indication: ADRENAL INSUFFICIENCY
     Dosage: DAILY DOSE: 5MG
     Dates: start: 20050801
  20. ADVAIR DISKUS 100/50 [Concomitant]
     Indication: ASTHMA
     Dosage: 1- 250/50MG PUFF TWICE DAILY
  21. COMBIVENT [Concomitant]
     Indication: ASTHMA
     Route: 055
     Dates: start: 20010101
  22. PLAQUENIL [Concomitant]
     Indication: SYSTEMIC LUPUS ERYTHEMATOSUS
  23. SYNTHROID [Concomitant]
     Indication: HYPOTHYROIDISM
     Dates: start: 20050701
  24. EFFEXOR [Concomitant]
     Indication: DEPRESSION
  25. SINGULAIR [Concomitant]
     Indication: ASTHMA
     Dosage: AT NIGHT
     Dates: start: 20010101

REACTIONS (24)
  - INFLUENZA [None]
  - UTERINE HAEMORRHAGE [None]
  - FUNGAL INFECTION [None]
  - GASTROOESOPHAGEAL REFLUX DISEASE [None]
  - SOMNOLENCE [None]
  - PLANTAR FASCIITIS [None]
  - RENAL FAILURE ACUTE [None]
  - PALLOR [None]
  - PAIN [None]
  - MALAISE [None]
  - DYSPHONIA [None]
  - FOLLICULITIS [None]
  - ATROPHY [None]
  - EXOSTOSIS [None]
  - PSEUDOMONAS INFECTION [None]
  - COGNITIVE DISORDER [None]
  - DEHYDRATION [None]
  - BLOOD TRIGLYCERIDES INCREASED [None]
  - PYREXIA [None]
  - ARTHRALGIA [None]
  - PSEUDOMONAS TEST POSITIVE [None]
  - DIPLOPIA [None]
  - JOINT DESTRUCTION [None]
  - TEMPOROMANDIBULAR JOINT SYNDROME [None]
